FAERS Safety Report 4859609-3 (Version None)
Quarter: 2005Q4

REPORT INFORMATION
  Report Type: 
  Country: None (occurrence: None)
  Receive Date: 20051219
  Receipt Date: 20050628
  Transmission Date: 20060501
  Serious: No
  Sender: FDA-Public Use
  Company Number: US-GLAXOSMITHKLINE-A0564465A

PATIENT
  Age: 41 Year

DRUGS (1)
  1. TARGET NTS 21MG [Suspect]

REACTIONS (4)
  - ANXIETY [None]
  - CHEST PAIN [None]
  - PARAESTHESIA [None]
  - TREMOR [None]
